FAERS Safety Report 4849074-4 (Version None)
Quarter: 2005Q4

REPORT INFORMATION
  Report Type: 
  Country: None (occurrence: None)
  Receive Date: 20051209
  Receipt Date: 20051206
  Transmission Date: 20060501
  Serious: Yes (Hospitalization)
  Sender: FDA-Public Use
  Company Number: 2005CG02030

PATIENT
  Age: 88 Year
  Sex: Female
  Weight: 63 kg

DRUGS (10)
  1. TENORMIN [Suspect]
     Route: 048
     Dates: end: 20051009
  2. TENORMIN [Suspect]
     Route: 048
     Dates: start: 20051010
  3. DIGOXIN [Suspect]
     Route: 048
     Dates: start: 20050715, end: 20051009
  4. DIAFUSOR [Concomitant]
     Route: 062
  5. ADANCOR [Concomitant]
     Route: 048
  6. LASILIX [Concomitant]
     Route: 048
  7. VIDORA [Concomitant]
     Route: 048
  8. GAVISCON [Concomitant]
  9. DOLIPRANE [Concomitant]
  10. APURONE [Concomitant]

REACTIONS (8)
  - ATRIOVENTRICULAR BLOCK [None]
  - CREPITATIONS [None]
  - DIZZINESS [None]
  - LOSS OF CONSCIOUSNESS [None]
  - MALAISE [None]
  - NAUSEA [None]
  - TONIC CLONIC MOVEMENTS [None]
  - VOMITING [None]
